FAERS Safety Report 25059670 (Version 1)
Quarter: 2025Q1

REPORT INFORMATION
  Report Type: Spontaneous
  Country: IT (occurrence: IT)
  Receive Date: 20250310
  Receipt Date: 20250310
  Transmission Date: 20250408
  Serious: Yes (Other)
  Sender: VERITY PHARMACEUTICALS INC.
  Company Number: IT-VER-202500003

PATIENT
  Age: 7 Year
  Sex: Female

DRUGS (1)
  1. TRIPTORELIN [Suspect]
     Active Substance: TRIPTORELIN
     Indication: Precocious puberty
     Dosage: POWDER AND SOLVENT FOR SUSPENSION FOR INJECTION
     Route: 065

REACTIONS (3)
  - Off label use [Unknown]
  - Growth retardation [Unknown]
  - Body mass index increased [Unknown]
